FAERS Safety Report 4890633-0 (Version None)
Quarter: 2006Q1

REPORT INFORMATION
  Report Type: 
  Country: None (occurrence: None)
  Receive Date: 20060123
  Receipt Date: 20060106
  Transmission Date: 20060701
  Serious: Yes (Hospitalization)
  Sender: FDA-Public Use
  Company Number: US200601001171

PATIENT
  Age: 92 Year

DRUGS (2)
  1. FORTEO [Suspect]
     Dates: start: 20051228
  2. FORTEO [Concomitant]

REACTIONS (2)
  - JOINT DISLOCATION [None]
  - PHARMACEUTICAL PRODUCT COMPLAINT [None]
